FAERS Safety Report 16063230 (Version 2)
Quarter: 2019Q2

REPORT INFORMATION
  Report Type: Spontaneous
  Country: US (occurrence: US)
  Receive Date: 20190312
  Receipt Date: 20190611
  Transmission Date: 20190711
  Serious: No
  Sender: FDA-Public Use
  Company Number: US-PFIZER INC-2019096087

PATIENT
  Age: 54 Year
  Sex: Female

DRUGS (2)
  1. SYNTHROID [Concomitant]
     Active Substance: LEVOTHYROXINE SODIUM
     Dosage: 88 UG, DAILY
     Dates: start: 200106
  2. LIOTHYRONINE SODIUM. [Suspect]
     Active Substance: LIOTHYRONINE SODIUM
     Indication: AUTOIMMUNE THYROIDITIS
     Dosage: 37.5 UG, DAILY
     Dates: start: 201812, end: 20190304

REACTIONS (8)
  - Dyspnoea [Recovered/Resolved]
  - Off label use [Unknown]
  - Muscular weakness [Recovered/Resolved]
  - Gait disturbance [Not Recovered/Not Resolved]
  - Muscle tightness [Recovering/Resolving]
  - Drug ineffective for unapproved indication [Recovered/Resolved]
  - Fatigue [Recovered/Resolved]
  - Pain in extremity [Recovering/Resolving]

NARRATIVE: CASE EVENT DATE: 201812
